FAERS Safety Report 5258535-8 (Version None)
Quarter: 2007Q1

REPORT INFORMATION
  Report Type: 
  Country: None (occurrence: None)
  Receive Date: 20070301
  Receipt Date: 20070118
  Transmission Date: 20070707
  Serious: Yes (Other)
  Sender: FDA-Public Use
  Company Number: THYM-11218

PATIENT

DRUGS (1)
  1. THYMOGLOBULIN [Suspect]
     Indication: LIVER TRANSPLANT REJECTION

REACTIONS (1)
  - LIVER TRANSPLANT REJECTION [None]
